FAERS Safety Report 15104716 (Version 1)
Quarter: 2018Q3

REPORT INFORMATION
  Report Type: Spontaneous
  Country: DE (occurrence: DE)
  Receive Date: 20180703
  Receipt Date: 20180703
  Transmission Date: 20181010
  Serious: Yes (Congenital Anomaly, Other)
  Sender: FDA-Public Use
  Company Number: PHHY2018DE029031

PATIENT

DRUGS (7)
  1. METFORMIN [Suspect]
     Active Substance: METFORMIN HYDROCHLORIDE
     Indication: FOETAL EXPOSURE DURING PREGNANCY
     Dosage: MATERNAL DOSE: UNK, 0 TO 6TH WEEK AND 4TH DAY
     Route: 064
  2. METOPROLOL. [Suspect]
     Active Substance: METOPROLOL
     Indication: FOETAL EXPOSURE DURING PREGNANCY
     Dosage: MATERNAL DOSE: UNK, 7TH WEEK AND 4TH DAY TO 35TH WEEK AND 3RD DAY
     Route: 064
  3. RAMIPRIL. [Suspect]
     Active Substance: RAMIPRIL
     Indication: FOETAL EXPOSURE DURING PREGNANCY
     Dosage: MATERNAL DOSE: 10 MG, FROM 0 TO 6TH WEEK AND 4TH DAY
     Route: 064
  4. INSULIN [Suspect]
     Active Substance: INSULIN NOS
     Indication: FOETAL EXPOSURE DURING PREGNANCY
     Dosage: MATERNAL DOSE: UNK, 35TH TO 6TH WEEK AND 3RD DAY
     Route: 064
  5. L THYROXIN [Suspect]
     Active Substance: LEVOTHYROXINE SODIUM
     Indication: FOETAL EXPOSURE DURING PREGNANCY
     Dosage: MATERNAL DOSE: UNK, 0 TO 35TH WEEK AND 3RD WEEK
     Route: 064
  6. SITAGLIPTIN [Suspect]
     Active Substance: SITAGLIPTIN
     Indication: FOETAL EXPOSURE DURING PREGNANCY
     Dosage: MATERNAL DOSE: UNK, 0 TO 6TH WEEK AND 4TH DAY
     Route: 064
  7. METHYLDOPA. [Suspect]
     Active Substance: METHYLDOPA
     Indication: FOETAL EXPOSURE DURING PREGNANCY
     Dosage: MATERNAL DOSE: UNK, 7TH WEEK AND 4TH DAY TO 35TH WEEK AND 3 DAYS
     Route: 064

REACTIONS (4)
  - Atrial septal defect [Unknown]
  - Overweight [Unknown]
  - Placental insufficiency [Unknown]
  - Maternal exposure during pregnancy [Unknown]
